FAERS Safety Report 5824843-2 (Version None)
Quarter: 2008Q3

REPORT INFORMATION
  Report Type: 
  Country: None (occurrence: None)
  Receive Date: 20080728
  Receipt Date: 20080708
  Transmission Date: 20090109
  Serious: No
  Sender: FDA-Public Use
  Company Number: US-BOEHRINGER INGELHEIM GMBH, GERMANY-2008-BP-10643BP

PATIENT
  Age: 70 Year
  Sex: Female

DRUGS (1)
  1. SPIRIVA [Suspect]

REACTIONS (2)
  - MOUTH ULCERATION [None]
  - ORAL PAIN [None]
